FAERS Safety Report 17555750 (Version 1)
Quarter: 2020Q1

REPORT INFORMATION
  Report Type: Spontaneous
  Country: FR (occurrence: FR)
  Receive Date: 20200318
  Receipt Date: 20200318
  Transmission Date: 20200409
  Serious: Yes (Other)
  Sender: FDA-Public Use
  Company Number: FR-BAYER-2020-043250

PATIENT
  Age: 75 Year
  Sex: Male

DRUGS (2)
  1. STIVARGA [Suspect]
     Active Substance: REGORAFENIB
     Indication: NEOPLASM MALIGNANT
     Dosage: UNK
     Dates: start: 201906, end: 2019
  2. STIVARGA [Suspect]
     Active Substance: REGORAFENIB
     Indication: NEOPLASM MALIGNANT
     Dosage: 80 MG PER DAY
     Dates: start: 20200308

REACTIONS (3)
  - Drug intolerance [None]
  - General physical health deterioration [None]
  - Off label use [None]

NARRATIVE: CASE EVENT DATE: 20200308
